FAERS Safety Report 21584549 (Version 1)
Quarter: 2022Q4

REPORT INFORMATION
  Report Type: Spontaneous
  Country: US (occurrence: US)
  Receive Date: 20221111
  Receipt Date: 20221111
  Transmission Date: 20230113
  Serious: No
  Sender: FDA-Public Use
  Company Number: US-JNJFOC-20221121386

PATIENT
  Age: 65 Year
  Sex: Female
  Weight: 63.560 kg

DRUGS (5)
  1. IMODIUM [Suspect]
     Active Substance: LOPERAMIDE HYDROCHLORIDE
     Indication: Diarrhoea
     Route: 065
  2. TREPROSTINIL DIOLAMINE [Suspect]
     Active Substance: TREPROSTINIL DIOLAMINE
     Indication: Pulmonary arterial hypertension
     Dosage: EXTENDED RELEASE TABLET, UNK MG
     Route: 065
     Dates: end: 20161130
  3. ORENITRAM [Suspect]
     Active Substance: TREPROSTINIL
     Indication: Pulmonary arterial hypertension
     Dosage: EXTENDED RELEASE TABLET, 0.25 MG , 2,5 MG, 3.25 MG, TID, ORAL USE
     Route: 048
  4. OPSUMIT [Concomitant]
     Active Substance: MACITENTAN
  5. TADALAFIL [Concomitant]
     Active Substance: TADALAFIL

REACTIONS (5)
  - Muscle spasms [Unknown]
  - Diarrhoea [Not Recovered/Not Resolved]
  - Abdominal pain upper [Unknown]
  - Decreased appetite [Not Recovered/Not Resolved]
  - Therapy partial responder [Unknown]
